FAERS Safety Report 16792499 (Version 5)
Quarter: 2020Q1

REPORT INFORMATION
  Report Type: Report from Study
  Country: US (occurrence: US)
  Receive Date: 20190910
  Receipt Date: 20200324
  Transmission Date: 20200409
  Serious: Yes (Hospitalization)
  Sender: FDA-Public Use
  Company Number: US-ACTELION-A-NJ2017-156846

PATIENT
  Age: 54 Year
  Sex: Female
  Weight: 58.5 kg

DRUGS (7)
  1. VELETRI [Suspect]
     Active Substance: EPOPROSTENOL
     Indication: PULMONARY ARTERIAL HYPERTENSION
     Dosage: 28.5 NG/KG, PER MIN
     Route: 042
  2. VELETRI [Suspect]
     Active Substance: EPOPROSTENOL
     Dosage: 31 NG/KG, PER MIN
     Route: 042
  3. REVATIO [Concomitant]
     Active Substance: SILDENAFIL CITRATE
  4. COUMADIN [Concomitant]
     Active Substance: WARFARIN SODIUM
  5. VELETRI [Suspect]
     Active Substance: EPOPROSTENOL
     Dosage: 30 NG/KG, PER MIN
     Route: 042
  6. VELETRI [Suspect]
     Active Substance: EPOPROSTENOL
     Dosage: 39 NG/KG, PER MIN
     Route: 042
  7. ADEMPAS [Concomitant]
     Active Substance: RIOCIGUAT

REACTIONS (16)
  - Platelet count decreased [Unknown]
  - Back pain [Unknown]
  - Pain [Unknown]
  - Catheter management [Unknown]
  - Injection site pruritus [Unknown]
  - Flushing [Unknown]
  - Systemic lupus erythematosus [Unknown]
  - Catheter site irritation [Unknown]
  - Catheter site pruritus [Unknown]
  - Pyrexia [Unknown]
  - Culture wound positive [Unknown]
  - Catheter site haemorrhage [Unknown]
  - Muscle spasms [Unknown]
  - Vascular device infection [Unknown]
  - Chest discomfort [Unknown]
  - Catheter site erythema [Recovered/Resolved]

NARRATIVE: CASE EVENT DATE: 20190806
